FAERS Safety Report 4564803-5 (Version None)
Quarter: 2005Q1

REPORT INFORMATION
  Report Type: 
  Country: None (occurrence: None)
  Receive Date: 20050128
  Receipt Date: 20050121
  Transmission Date: 20050727
  Serious: Yes (Other)
  Sender: FDA-Public Use
  Company Number: GB-MERCK-0501GBR00229

PATIENT
  Age: 56 Year
  Sex: Male

DRUGS (7)
  1. PHENOBARBITAL [Concomitant]
     Indication: GRAND MAL CONVULSION
     Route: 048
  2. LOPERAMIDE HYDROCHLORIDE [Concomitant]
     Indication: COLITIS
     Route: 048
  3. PHENYTOIN SODIUM [Concomitant]
     Indication: GRAND MAL CONVULSION
     Route: 048
  4. ZOLMITRIPTAN [Concomitant]
     Indication: MIGRAINE
     Route: 048
  5. ASPIRIN [Concomitant]
     Indication: ANTIPLATELET THERAPY
     Route: 048
  6. RANITIDINE [Concomitant]
     Indication: DYSPEPSIA
     Route: 048
  7. ZETIA [Suspect]
     Indication: HYPERCHOLESTEROLAEMIA
     Route: 048
     Dates: start: 20041203

REACTIONS (1)
  - IRRITABILITY [None]
